FAERS Safety Report 23146864 (Version 1)
Quarter: 2023Q4

REPORT INFORMATION
  Report Type: Spontaneous
  Country: FR (occurrence: FR)
  Receive Date: 20231106
  Receipt Date: 20231106
  Transmission Date: 20240110
  Serious: No
  Sender: FDA-Public Use
  Company Number: FR-SCALL-2023-FR-082177

PATIENT
  Age: 78 Year
  Sex: Male
  Weight: 97 kg

DRUGS (2)
  1. DUTASTERIDE [Suspect]
     Active Substance: DUTASTERIDE
     Indication: Prostatic adenoma
     Dosage: 0.5 MG, QD
     Route: 048
     Dates: start: 202212, end: 20230216
  2. TAMSULOSIN [Suspect]
     Active Substance: TAMSULOSIN
     Indication: Prostatic adenoma
     Dosage: 0.4 MG, QD
     Route: 065
     Dates: end: 20230216

REACTIONS (4)
  - Chest discomfort [Recovering/Resolving]
  - Urticaria [Recovered/Resolved]
  - Constipation [Recovering/Resolving]
  - Dyspnoea [Recovering/Resolving]

NARRATIVE: CASE EVENT DATE: 20230201
